FAERS Safety Report 18143546 (Version 1)
Quarter: 2020Q3

REPORT INFORMATION
  Report Type: Spontaneous
  Country: US (occurrence: US)
  Receive Date: 20200813
  Receipt Date: 20200813
  Transmission Date: 20201103
  Serious: No
  Sender: FDA-Public Use
  Company Number: US-009507513-2007USA006974

PATIENT
  Age: 17 Year
  Weight: 113.3 kg

DRUGS (2)
  1. NOXAFIL [Suspect]
     Active Substance: POSACONAZOLE
     Indication: PROPHYLAXIS
     Dosage: 3.5 MG/KG/DAY, 400 MILLIGRAM DAILY
     Route: 048
  2. NOXAFIL [Suspect]
     Active Substance: POSACONAZOLE
     Dosage: 2.5 MG/KG/DAY, AFTER ADJUSTMENT
     Route: 048

REACTIONS (1)
  - Incorrect dose administered [Unknown]
